FAERS Safety Report 8822731 (Version 1)
Quarter: 2012Q4

REPORT INFORMATION
  Report Type: 
  Country: US (occurrence: US)
  Receive Date: 20121003
  Receipt Date: 20121003
  Transmission Date: 20130627
  Serious: Yes (Disabling, Other)
  Sender: FDA-Public Use
  Company Number: US-JNJFOC-20120909642

PATIENT
  Age: 59 None
  Sex: Female
  Weight: 76.2 kg

DRUGS (21)
  1. INVEGA [Suspect]
     Indication: PSYCHOTIC DISORDER
     Route: 048
     Dates: start: 200702, end: 201009
  2. INVEGA [Suspect]
     Indication: DEPRESSION
     Route: 048
     Dates: start: 200702, end: 201009
  3. LIPITOR [Concomitant]
     Route: 048
  4. CARTIA XT [Concomitant]
     Route: 048
  5. LEXAPRO [Concomitant]
     Route: 048
  6. ALBUTEROL SULPHATE [Concomitant]
     Route: 045
  7. CLONAZEPAM [Concomitant]
     Indication: ANXIETY
     Route: 048
  8. WARFARIN SODIUM [Concomitant]
     Indication: THROMBOSIS
     Route: 048
  9. METFORMIN [Concomitant]
     Route: 048
  10. FERRONAT [Concomitant]
     Route: 048
  11. CALCIUM 500 [Concomitant]
     Route: 048
  12. SPIRIVA HANDIHALER [Concomitant]
     Dosage: 18MCG capsule inhalation
     Route: 055
  13. XOPENEX [Concomitant]
     Dosage: 0.63mg/3mL
     Route: 055
  14. LISINOPRIL [Concomitant]
     Dosage: 18MCG capsule inhalation
     Route: 048
  15. RANITIDINE HCL [Concomitant]
     Dosage: 18MCG capsule inhalation
     Route: 048
  16. ADVAIR DISKUS [Concomitant]
     Dosage: 500-50 mcg/dose
     Route: 055
  17. XOPENEX INHALER [Concomitant]
     Dosage: 45mcg/actuation
     Route: 055
  18. VITAMIN D [Concomitant]
     Route: 048
  19. POTASSIUM CHLORIDE [Concomitant]
     Route: 048
  20. FUROSEMIDE [Concomitant]
     Route: 048
  21. PREDNISONE [Concomitant]
     Indication: PRODUCT USED FOR UNKNOWN INDICATION
     Route: 065

REACTIONS (2)
  - Tardive dyskinesia [Not Recovered/Not Resolved]
  - Panic attack [Unknown]
